FAERS Safety Report 17340352 (Version 2)
Quarter: 2020Q1

REPORT INFORMATION
  Report Type: Report from Study
  Country: US (occurrence: US)
  Receive Date: 20200129
  Receipt Date: 20200304
  Transmission Date: 20200409
  Serious: Yes (Hospitalization, Other)
  Sender: FDA-Public Use
  Company Number: US-GLAXOSMITHKLINE-2019-TSO02447-US

PATIENT
  Age: 75 Year
  Sex: Female
  Weight: 68 kg

DRUGS (12)
  1. MAGNESIUM [Concomitant]
     Active Substance: MAGNESIUM
     Indication: PRODUCT USED FOR UNKNOWN INDICATION
     Dosage: UNK
  2. NIRAPARIB [Suspect]
     Active Substance: NIRAPARIB
     Dosage: 100 MG, QD
     Route: 048
     Dates: start: 20190911
  3. NIRAPARIB [Suspect]
     Active Substance: NIRAPARIB
     Dosage: 100 MG, QD
     Route: 048
  4. DULCOLAX NOS [Concomitant]
     Active Substance: BISACODYL OR DOCUSATE SODIUM
     Indication: PRODUCT USED FOR UNKNOWN INDICATION
     Dosage: UNK
  5. NIRAPARIB [Suspect]
     Active Substance: NIRAPARIB
     Indication: OVARIAN CANCER
     Dosage: 300 MG, HS AROUND 10 PM WITH AND W/O FOOD
     Dates: start: 20190701, end: 20190717
  6. NIRAPARIB [Suspect]
     Active Substance: NIRAPARIB
     Dosage: 200 MG, QD IN PM
     Dates: start: 20190731, end: 20190826
  7. NIRAPARIB [Suspect]
     Active Substance: NIRAPARIB
     Dosage: 100 MG, QD
     Route: 048
  8. NIRAPARIB [Suspect]
     Active Substance: NIRAPARIB
     Dosage: 100 MG, QD
  9. THYROID [Concomitant]
     Active Substance: LEVOTHYROXINE\LIOTHYRONINE
     Indication: PRODUCT USED FOR UNKNOWN INDICATION
     Dosage: UNK, QD AM
  10. NIRAPARIB [Suspect]
     Active Substance: NIRAPARIB
     Dosage: 100 MG, QD
     Route: 048
     Dates: start: 20190911
  11. TRAMADOL. [Concomitant]
     Active Substance: TRAMADOL
     Indication: MUSCLE SPASMS
     Dosage: UNK
  12. GABAPENTIN. [Concomitant]
     Active Substance: GABAPENTIN
     Indication: NEUROPATHY PERIPHERAL
     Dosage: UNK

REACTIONS (20)
  - Cataract [Unknown]
  - Gait disturbance [Not Recovered/Not Resolved]
  - Anaemia [Recovered/Resolved]
  - Blood pressure fluctuation [Recovered/Resolved]
  - Hypertension [Recovering/Resolving]
  - Thrombocytopenia [Recovered/Resolved]
  - Dizziness [Recovering/Resolving]
  - Urinary tract infection [Not Recovered/Not Resolved]
  - Fatigue [Recovered/Resolved]
  - Thrombosis [Recovered/Resolved]
  - Taste disorder [Recovering/Resolving]
  - Nausea [Recovered/Resolved]
  - Weight decreased [Recovering/Resolving]
  - Pulmonary mass [Recovering/Resolving]
  - Dyspnoea [Recovering/Resolving]
  - Constipation [Recovered/Resolved]
  - Product dose omission [Unknown]
  - Blood test abnormal [Recovered/Resolved]
  - White blood cell count decreased [Recovered/Resolved]
  - Insomnia [Recovering/Resolving]

NARRATIVE: CASE EVENT DATE: 20190701
